FAERS Safety Report 7917455-8 (Version None)
Quarter: 2011Q4

REPORT INFORMATION
  Report Type: 
  Country: None (occurrence: None)
  Receive Date: 20111116
  Receipt Date: 20111111
  Transmission Date: 20120403
  Serious: No
  Sender: FDA-Public Use
  Company Number: PHHY2011US06916

PATIENT
  Sex: Female

DRUGS (18)
  1. KLONOPIN [Concomitant]
  2. ZYRTEC [Concomitant]
  3. LUVOX [Concomitant]
  4. IMITREX [Concomitant]
  5. GILENYA [Suspect]
     Dosage: 0.5 MG, QD
     Route: 048
     Dates: start: 20110101
  6. SANCTURA [Concomitant]
  7. TOPAMAX [Concomitant]
  8. CYMBALTA [Concomitant]
  9. ZOFRAN [Concomitant]
  10. GILENYA [Suspect]
     Indication: MULTIPLE SCLEROSIS
     Dosage: 0.5 MG, QD
     Route: 048
     Dates: start: 20110126, end: 20110127
  11. NORCO [Concomitant]
  12. LAMICTAL [Concomitant]
  13. VALTREX [Concomitant]
  14. AMBIEN [Concomitant]
  15. ZOMIG [Concomitant]
  16. ULTRAM [Concomitant]
  17. SYNTHROID [Concomitant]
  18. ADDERALL 5 [Concomitant]

REACTIONS (5)
  - HEADACHE [None]
  - PAIN [None]
  - HEART RATE IRREGULAR [None]
  - FATIGUE [None]
  - CONTUSION [None]
